FAERS Safety Report 7654961-8 (Version None)
Quarter: 2011Q3

REPORT INFORMATION
  Report Type: 
  Country: None (occurrence: None)
  Receive Date: 20110804
  Receipt Date: 20110721
  Transmission Date: 20111222
  Serious: No
  Sender: FDA-Public Use
  Company Number: PHHY2010US23819

PATIENT
  Sex: Male

DRUGS (8)
  1. GLEEVEC [Suspect]
     Indication: CHRONIC MYELOID LEUKAEMIA
     Dosage: 400  MG,
     Route: 048
     Dates: start: 20090701
  2. TASIGNA [Suspect]
  3. SIMVASTATIN [Concomitant]
     Dosage: 80 MG, UNK
  4. GLEEVEC [Suspect]
     Dosage: 300 MG, BID
  5. SPRYCEL [Suspect]
  6. DIOVAN [Concomitant]
  7. OMEPRAZOLE [Concomitant]
     Dosage: 20 MG, DAILY
  8. IBUPROFEN [Concomitant]

REACTIONS (4)
  - UNEVALUABLE EVENT [None]
  - DRUG INEFFECTIVE [None]
  - HEPATIC ENZYME INCREASED [None]
  - THERAPEUTIC RESPONSE UNEXPECTED [None]
